FAERS Safety Report 11223920 (Version 1)
Quarter: 2015Q2

REPORT INFORMATION
  Report Type: Spontaneous
  Country: US (occurrence: None)
  Receive Date: 20150625
  Receipt Date: 20150625
  Transmission Date: 20150821
  Serious: Yes (Other)
  Sender: FDA-Public Use
  Company Number: None

PATIENT
  Age: 57 Year
  Sex: Female

DRUGS (1)
  1. HARVONI [Suspect]
     Active Substance: LEDIPASVIR\SOFOSBUVIR
     Indication: HEPATITIS C
     Dosage: HARVONI 90-400
     Route: 048
     Dates: start: 20150506

REACTIONS (5)
  - Blood potassium decreased [None]
  - Headache [None]
  - Fatigue [None]
  - Feeling abnormal [None]
  - Skin exfoliation [None]

NARRATIVE: CASE EVENT DATE: 20150624
